FAERS Safety Report 10540823 (Version 1)
Quarter: 2014Q4

REPORT INFORMATION
  Report Type: Spontaneous
  Country: AR (occurrence: None)
  Receive Date: 20141022
  Receipt Date: 20141022
  Transmission Date: 20150529
  Serious: Yes (Hospitalization)
  Sender: FDA-Public Use
  Company Number: 2014HINLIT0936

PATIENT
  Age: 39 Year
  Sex: Female

DRUGS (3)
  1. ATAZANAVIR [Concomitant]
     Active Substance: ATAZANAVIR
  2. RITONAVIR (RITONAVIR) [Concomitant]
     Active Substance: RITONAVIR
  3. TENOFOVIR [Suspect]
     Active Substance: TENOFOVIR
     Indication: HIV INFECTION

REACTIONS (5)
  - Hypercalcaemia [None]
  - Renal impairment [None]
  - Toxicity to various agents [None]
  - Calcinosis [None]
  - Hypertension [None]
